FAERS Safety Report 11100263 (Version 4)
Quarter: 2015Q4

REPORT INFORMATION
  Report Type: Report from Study
  Country: US (occurrence: US)
  Receive Date: 20150508
  Receipt Date: 20151008
  Transmission Date: 20160304
  Serious: Yes (Hospitalization, Other)
  Sender: FDA-Public Use
  Company Number: US-SA-2014SA133452

PATIENT
  Age: 57 Year
  Sex: Female

DRUGS (3)
  1. AUBAGIO [Suspect]
     Active Substance: TERIFLUNOMIDE
     Indication: RELAPSING-REMITTING MULTIPLE SCLEROSIS
     Route: 048
     Dates: start: 20140816, end: 20150807
  2. AUBAGIO [Suspect]
     Active Substance: TERIFLUNOMIDE
     Indication: MULTIPLE SCLEROSIS
     Route: 048
     Dates: start: 20140816, end: 20150807
  3. BETASERON [Concomitant]
     Active Substance: INTERFERON BETA-1B
     Indication: MULTIPLE SCLEROSIS
     Dates: start: 20050201, end: 20140813

REACTIONS (16)
  - Pneumonia [Unknown]
  - Clostridium difficile colitis [Unknown]
  - Alopecia [Recovering/Resolving]
  - Urinary tract infection [Unknown]
  - Volvulus [Unknown]
  - Diarrhoea [Not Recovered/Not Resolved]
  - Ulcer [Unknown]
  - Dysphagia [Recovering/Resolving]
  - Oxygen saturation decreased [Unknown]
  - Staphylococcal infection [Unknown]
  - Secondary progressive multiple sclerosis [Unknown]
  - Productive cough [Unknown]
  - Weight decreased [Not Recovered/Not Resolved]
  - Cystitis [Unknown]
  - Mastication disorder [Unknown]
  - Constipation [Unknown]
